FAERS Safety Report 4320995-4 (Version None)
Quarter: 2004Q1

REPORT INFORMATION
  Report Type: 
  Country: None (occurrence: None)
  Receive Date: 20040316
  Receipt Date: 20040305
  Transmission Date: 20041129
  Serious: Yes (Hospitalization)
  Sender: FDA-Public Use
  Company Number: E2004-00268

PATIENT
  Age: 32 Year
  Sex: Female

DRUGS (1)
  1. TUBERTEST (TUBERCULIN PPD(M) 5 TU) [Suspect]
     Indication: TUBERCULIN TEST
     Dosage: I.D.
     Route: 041
     Dates: start: 20030915

REACTIONS (4)
  - INJECTION SITE ABSCESS [None]
  - INJECTION SITE INFLAMMATION [None]
  - INJECTION SITE NODULE [None]
  - RASH PAPULAR [None]
